FAERS Safety Report 4679313-4 (Version None)
Quarter: 2005Q2

REPORT INFORMATION
  Report Type: 
  Country: None (occurrence: None)
  Receive Date: 20050602
  Receipt Date: 20050520
  Transmission Date: 20051028
  Serious: Yes (Hospitalization)
  Sender: FDA-Public Use
  Company Number: GB-BRISTOL-MYERS SQUIBB COMPANY-12977104

PATIENT
  Age: 77 Year
  Sex: Female

DRUGS (13)
  1. IRBESARTAN [Suspect]
     Route: 048
  2. METFORMIN HCL [Suspect]
     Route: 048
  3. SPIRONOLACTONE [Suspect]
     Route: 048
  4. MELOXICAM [Suspect]
     Route: 048
  5. DOXAZOSIN [Concomitant]
     Route: 048
  6. HYDRALAZINE [Concomitant]
     Route: 048
  7. RANITIDINE [Concomitant]
  8. FERROUS SULFATE TAB [Concomitant]
     Route: 048
  9. AMLODIPINE [Concomitant]
     Route: 048
  10. MOXONIDINE [Concomitant]
     Route: 048
  11. ALENDRONIC ACID [Concomitant]
     Route: 048
  12. ATORVASTATIN CALCIUM [Concomitant]
     Route: 048
  13. BISOPROLOL FUMARATE [Concomitant]
     Route: 048

REACTIONS (5)
  - ACIDOSIS [None]
  - DEHYDRATION [None]
  - DIARRHOEA [None]
  - HYPERKALAEMIA [None]
  - RENAL FAILURE ACUTE [None]
